FAERS Safety Report 18132209 (Version 1)
Quarter: 2020Q3

REPORT INFORMATION
  Report Type: Spontaneous
  Country: FR (occurrence: FR)
  Receive Date: 20200811
  Receipt Date: 20200811
  Transmission Date: 20201103
  Serious: Yes (Death)
  Sender: FDA-Public Use
  Company Number: FR-CELLTRION INC.-2020FR023980

PATIENT

DRUGS (3)
  1. PEMBROLIZUMAB. [Suspect]
     Active Substance: PEMBROLIZUMAB
     Indication: BLADDER CANCER
     Dosage: ICI TREATMENT
     Dates: start: 201803, end: 201810
  2. INFLIXIMAB (UNKNOWN) [Suspect]
     Active Substance: INFLIXIMAB
     Indication: AUTOIMMUNE COLITIS
     Dosage: 5 MG/KG (WEEK 1 AND WEEK 2, NO MRORE DETAILS AVAILABLE)
     Dates: start: 201812
  3. CORTICOSTEROID NOS [Concomitant]
     Active Substance: CORTICOSTEROID NOS
     Indication: NERVOUS SYSTEM DISORDER
     Dosage: 2 MG/KG, DAILY
     Dates: start: 201901

REACTIONS (1)
  - Death [Fatal]
